FAERS Safety Report 11292284 (Version 3)
Quarter: 2015Q3

REPORT INFORMATION
  Report Type: Report from Study
  Country: JP (occurrence: JP)
  Receive Date: 20150722
  Receipt Date: 20150930
  Transmission Date: 20151125
  Serious: No
  Sender: FDA-Public Use
  Company Number: JP-INCYTE CORPORATION-2015IN003424

PATIENT
  Age: 74 Year
  Sex: Male
  Weight: 45 kg

DRUGS (3)
  1. JAKAFI [Suspect]
     Active Substance: RUXOLITINIB
     Indication: MYELOFIBROSIS
     Dosage: 5 MG, QD
     Route: 048
     Dates: start: 20140930
  2. PREDONINE [Concomitant]
     Active Substance: PREDNISOLONE\PREDNISOLONE ACETATE\PREDNISOLONE SODIUM SUCCINATE
     Indication: MYELOFIBROSIS
     Dosage: 20 MG, UNK
     Route: 048
  3. CYMERIN [Concomitant]
     Active Substance: RANIMUSTINE
     Indication: MYELOFIBROSIS
     Dosage: 30 MG, UNK
     Route: 065
     Dates: end: 20140927

REACTIONS (7)
  - Gastrointestinal haemorrhage [Recovered/Resolved]
  - White blood cell count increased [Unknown]
  - Fungal infection [Recovered/Resolved]
  - Platelet count decreased [Unknown]
  - Haemoglobin decreased [Unknown]
  - Haematocrit decreased [Unknown]
  - Red blood cell count decreased [Unknown]

NARRATIVE: CASE EVENT DATE: 20141112
